FAERS Safety Report 22068433 (Version 1)
Quarter: 2023Q1

REPORT INFORMATION
  Report Type: Spontaneous
  Country: None (occurrence: PL)
  Receive Date: 20230307
  Receipt Date: 20230307
  Transmission Date: 20230417
  Serious: Yes (Other)
  Sender: FDA-Public Use
  Company Number: PL-Therakind Limited-2138768

PATIENT
  Age: 52 Year
  Sex: Male

DRUGS (4)
  1. METHOTREXATE [Suspect]
     Active Substance: METHOTREXATE
     Indication: Allogenic stem cell transplantation
  2. CYCLOSPORINE [Suspect]
     Active Substance: CYCLOSPORINE
  3. THYMOGLOBULIN [Suspect]
     Active Substance: LAPINE T-LYMPHOCYTE IMMUNE GLOBULIN
  4. MYCOPHENOLATE MOFETIL [Suspect]
     Active Substance: MYCOPHENOLATE MOFETIL

REACTIONS (6)
  - Skin lesion [Unknown]
  - Cytomegalovirus infection reactivation [Unknown]
  - Gastrointestinal inflammation [Unknown]
  - BK virus infection [Unknown]
  - Product use in unapproved indication [Unknown]
  - Acute graft versus host disease [Unknown]
